FAERS Safety Report 21532901 (Version 2)
Quarter: 2022Q4

REPORT INFORMATION
  Report Type: Spontaneous
  Country: US (occurrence: US)
  Receive Date: 20221101
  Receipt Date: 20221118
  Transmission Date: 20230113
  Serious: No
  Sender: FDA-Public Use
  Company Number: US-ETHYPHARM-2022002134

PATIENT
  Sex: Female

DRUGS (1)
  1. BUPRENORPHINE [Suspect]
     Active Substance: BUPRENORPHINE
     Indication: Back disorder
     Dosage: BEEN ON THESE FOR FOUR+ YEARS

REACTIONS (4)
  - Tooth loss [Not Recovered/Not Resolved]
  - Mastication disorder [Not Recovered/Not Resolved]
  - Toothache [Not Recovered/Not Resolved]
  - Off label use [Not Recovered/Not Resolved]
